FAERS Safety Report 5845173-9 (Version None)
Quarter: 2008Q3

REPORT INFORMATION
  Report Type: 
  Country: None (occurrence: None)
  Receive Date: 20080814
  Receipt Date: 20080807
  Transmission Date: 20090109
  Serious: Yes (Other)
  Sender: FDA-Public Use
  Company Number: PHHY2008JP17163

PATIENT

DRUGS (1)
  1. MIKELAN (NVO) [Suspect]

REACTIONS (2)
  - ABULIA [None]
  - DEPRESSION [None]
